FAERS Safety Report 18975992 (Version 4)
Quarter: 2022Q4

REPORT INFORMATION
  Report Type: Report from Study
  Country: US (occurrence: US)
  Receive Date: 20210306
  Receipt Date: 20221130
  Transmission Date: 20230112
  Serious: No
  Sender: FDA-Public Use
  Company Number: NVSC2021US041403

PATIENT
  Sex: Female

DRUGS (2)
  1. ENTRESTO [Suspect]
     Active Substance: SACUBITRIL\VALSARTAN
     Indication: Cardiac failure chronic
     Dosage: 24/26 MG, BID
     Route: 048
     Dates: start: 20201231
  2. ENTRESTO [Suspect]
     Active Substance: SACUBITRIL\VALSARTAN
     Indication: Cardiac failure
     Dosage: (PATIENT 1 TABLET AND 1/2 TABLET)
     Route: 048

REACTIONS (11)
  - Amnesia [Unknown]
  - Blood pressure inadequately controlled [Unknown]
  - Somnolence [Unknown]
  - Anxiety [Unknown]
  - Memory impairment [Unknown]
  - Fatigue [Unknown]
  - Cardiac disorder [Unknown]
  - Cough [Unknown]
  - Dizziness [Unknown]
  - Incorrect dose administered [Unknown]
  - Wrong technique in product usage process [Unknown]
